FAERS Safety Report 6714155-7 (Version None)
Quarter: 2010Q2

REPORT INFORMATION
  Report Type: 
  Country: None (occurrence: None)
  Receive Date: 20100503
  Receipt Date: 20100420
  Transmission Date: 20101027
  Serious: Yes (Hospitalization, Other)
  Sender: FDA-Public Use
  Company Number: 009459

PATIENT
  Sex: Male
  Weight: 95 kg

DRUGS (10)
  1. CERTOLIZUMAB PEGOL (CERTOLIZUMAB PEGOL) [Suspect]
     Indication: RHEUMATOID ARTHRITIS
     Dosage: SEE IMAGE
     Route: 058
     Dates: start: 20050526, end: 20060510
  2. CERTOLIZUMAB PEGOL (CERTOLIZUMAB PEGOL) [Suspect]
     Indication: RHEUMATOID ARTHRITIS
     Dosage: SEE IMAGE
     Route: 058
     Dates: start: 20060524, end: 20081203
  3. CERTOLIZUMAB PEGOL (CERTOLIZUMAB PEGOL) [Suspect]
     Indication: RHEUMATOID ARTHRITIS
     Dosage: SEE IMAGE
     Route: 058
     Dates: start: 20081217
  4. METHOTREXATE [Concomitant]
  5. FOLIC ACID [Concomitant]
  6. TRAMADOL HCL [Concomitant]
  7. PREDNISOLONE [Concomitant]
  8. COVERSYL /00790701/ [Concomitant]
  9. METOPROLOL [Concomitant]
  10. PRAVASTATIN [Concomitant]

REACTIONS (16)
  - ABDOMINAL PAIN [None]
  - ARTHRALGIA [None]
  - CONFUSIONAL STATE [None]
  - FIBULA FRACTURE [None]
  - FLATULENCE [None]
  - HAEMOTHORAX [None]
  - HEADACHE [None]
  - HYPERTENSION [None]
  - LETHARGY [None]
  - LOBAR PNEUMONIA [None]
  - PAIN [None]
  - RIB FRACTURE [None]
  - SOMNOLENCE [None]
  - TIBIA FRACTURE [None]
  - UPPER LIMB FRACTURE [None]
  - VOMITING [None]
